FAERS Safety Report 6719379-0 (Version None)
Quarter: 2010Q2

REPORT INFORMATION
  Report Type: 
  Country: None (occurrence: None)
  Receive Date: 20100511
  Receipt Date: 20100507
  Transmission Date: 20101027
  Serious: No
  Sender: FDA-Public Use
  Company Number: US-BRISTOL-MYERS SQUIBB COMPANY-15088313

PATIENT
  Age: 9 Year
  Sex: Male

DRUGS (4)
  1. ABILIFY [Suspect]
     Indication: MOOD SWINGS
     Dosage: 1/2 TABS IN THE MORNING;1/2 TABS AT BED TIME
     Route: 048
  2. ABILIFY [Suspect]
     Indication: AGGRESSION
     Dosage: 1/2 TABS IN THE MORNING;1/2 TABS AT BED TIME
     Route: 048
  3. FOCALIN [Concomitant]
     Dosage: FOCALIN XR 20MG
  4. ZOLOFT [Concomitant]
     Dosage: ZOLOFT 25MG

REACTIONS (1)
  - TARDIVE DYSKINESIA [None]
